FAERS Safety Report 22119832 (Version 2)
Quarter: 2023Q4

REPORT INFORMATION
  Report Type: Spontaneous
  Country: CN (occurrence: CN)
  Receive Date: 20230321
  Receipt Date: 20231006
  Transmission Date: 20240110
  Serious: Yes (Life-Threatening)
  Sender: FDA-Public Use
  Company Number: CN-BAYER-2023A036460

PATIENT
  Age: 72 Year
  Sex: Male
  Weight: 69 kg

DRUGS (2)
  1. ULTRAVIST [Suspect]
     Active Substance: IOPROMIDE
     Indication: Angiogram
     Dosage: 1 DF, ONCE
     Route: 041
     Dates: start: 20230313, end: 20230313
  2. ULTRAVIST [Suspect]
     Active Substance: IOPROMIDE
     Indication: Varicose vein

REACTIONS (4)
  - Anaphylactic shock [Unknown]
  - Chest discomfort [Unknown]
  - Hyperhidrosis [Unknown]
  - Incorrect drug administration rate [None]

NARRATIVE: CASE EVENT DATE: 20230313
